FAERS Safety Report 9249543 (Version 2)
Quarter: 2013Q2

REPORT INFORMATION
  Report Type: Report from Study
  Country: US (occurrence: US)
  Receive Date: 20130423
  Receipt Date: 20130510
  Transmission Date: 20140414
  Serious: Yes (Death)
  Sender: FDA-Public Use
  Company Number: PHEH2013US008998

PATIENT
  Age: 65 Year
  Sex: Male
  Weight: 116 kg

DRUGS (12)
  1. GLEEVEC [Suspect]
     Indication: GASTROINTESTINAL STROMAL TUMOUR
     Dosage: 400 MG, QD
     Route: 048
     Dates: start: 20130221
  2. PERCOCET [Concomitant]
     Dosage: 7.5-325 MG,1 TABLET
  3. GLENOL [Concomitant]
     Dosage: UNK UKN, UNK
  4. TERAZOSIN HYDROCHLORIDE [Concomitant]
     Dosage: 1 DF, BID
  5. GLIPIZIDE XL [Concomitant]
     Dosage: 1 DF, DAILY
     Route: 048
  6. JANUMET [Concomitant]
     Dosage: 50-500/1000,2 TABLET
  7. ATENOLOL [Concomitant]
     Dosage: 1 DF, QD
     Route: 048
  8. ASPIRIN [Concomitant]
     Dosage: 81 MG, DAILY
     Route: 048
  9. BYETTA [Concomitant]
     Dosage: 10 MG,DAILY
     Route: 048
  10. MICARDIS [Concomitant]
     Dosage: 80/12.5  ONE DAILY
     Route: 048
  11. NORCO [Concomitant]
     Indication: PAIN
     Dosage: UNK UKN, 5-325
  12. PROTONIX [Concomitant]
     Dosage: 40 MG,DAILY
     Route: 048

REACTIONS (4)
  - Death [Fatal]
  - Blood pressure decreased [Unknown]
  - Haemoglobin decreased [Unknown]
  - Fatigue [Unknown]
